FAERS Safety Report 24916869 (Version 2)
Quarter: 2025Q1

REPORT INFORMATION
  Report Type: Spontaneous
  Country: IN (occurrence: IN)
  Receive Date: 20250203
  Receipt Date: 20250210
  Transmission Date: 20250409
  Serious: Yes (Other)
  Sender: SCIEGEN PHARMACEUTICALS INC
  Company Number: IN-SCIEGENP-2025SCLIT00018

PATIENT
  Age: 50 Year
  Sex: Male

DRUGS (8)
  1. ATORVASTATIN CALCIUM [Suspect]
     Active Substance: ATORVASTATIN CALCIUM
     Indication: Dyslipidaemia
     Route: 065
     Dates: start: 2023, end: 2023
  2. EZETIMIBE [Suspect]
     Active Substance: EZETIMIBE
     Indication: Dyslipidaemia
     Route: 065
     Dates: start: 2023, end: 2023
  3. ROSUVASTATIN [Suspect]
     Active Substance: ROSUVASTATIN
     Indication: Dyslipidaemia
     Route: 065
     Dates: start: 2022, end: 2022
  4. ROSUVASTATIN [Suspect]
     Active Substance: ROSUVASTATIN
     Route: 065
     Dates: start: 2022, end: 2022
  5. FENOFIBRATE [Suspect]
     Active Substance: FENOFIBRATE
     Indication: Dyslipidaemia
     Route: 065
     Dates: start: 2022, end: 2022
  6. FENOFIBRATE [Suspect]
     Active Substance: FENOFIBRATE
     Route: 065
     Dates: start: 2023, end: 2023
  7. COD LIVER OIL [Suspect]
     Active Substance: COD LIVER OIL
     Indication: Dyslipidaemia
     Route: 065
     Dates: start: 2023, end: 2024
  8. COD LIVER OIL [Suspect]
     Active Substance: COD LIVER OIL
     Dosage: AT NIGHT
     Route: 065
     Dates: start: 2024, end: 2024

REACTIONS (3)
  - Erectile dysfunction [Recovered/Resolved]
  - Testicular pain [Recovered/Resolved]
  - Loss of libido [Recovered/Resolved]
